FAERS Safety Report 8086602-2 (Version None)
Quarter: 2012Q1

REPORT INFORMATION
  Report Type: 
  Country: None (occurrence: None)
  Receive Date: 20120128
  Receipt Date: 20110516
  Transmission Date: 20120608
  Serious: No
  Sender: FDA-Public Use
  Company Number: US-ABBOTT-11P-163-0726172-00

PATIENT
  Age: 31 Year
  Sex: Male

DRUGS (4)
  1. MULTI-VITAMIN [Concomitant]
     Indication: PRODUCT USED FOR UNKNOWN INDICATION
  2. HUMIRA [Suspect]
     Indication: PSORIASIS
     Dates: start: 20110227, end: 20110501
  3. ISONIAZID [Concomitant]
     Indication: PRODUCT USED FOR UNKNOWN INDICATION
  4. B6 [Concomitant]
     Indication: PRODUCT USED FOR UNKNOWN INDICATION

REACTIONS (6)
  - PUSTULAR PSORIASIS [None]
  - BLISTER [None]
  - ERYTHEMA [None]
  - ARTHRALGIA [None]
  - BONE PAIN [None]
  - PAIN IN EXTREMITY [None]
